FAERS Safety Report 4308998-7 (Version None)
Quarter: 2004Q1

REPORT INFORMATION
  Report Type: 
  Country: None (occurrence: None)
  Receive Date: 20040227
  Receipt Date: 20040218
  Transmission Date: 20041129
  Serious: Yes (Hospitalization)
  Sender: FDA-Public Use
  Company Number: 2004200064FR

PATIENT
  Age: 80 Year
  Sex: Male

DRUGS (6)
  1. ALDACTONE [Suspect]
     Dosage: 1 DF, EVERY 2 DAYS, ORAL
     Route: 048
     Dates: end: 20030604
  2. BENAZEPRIL HCL [Suspect]
     Dosage: 1 DF, QD, ORAL
     Route: 048
     Dates: end: 20030604
  3. AMIODARONE HYDROCHLORIDE [Suspect]
     Dosage: 1 DF, 5 DAYS PER WEEKS, ORAL
     Route: 048
     Dates: end: 20030604
  4. LASILIX [Concomitant]
  5. PREVISCAN (FLUINDIONE) [Concomitant]
  6. PRAVASTATIN SODIUM [Concomitant]

REACTIONS (12)
  - ASTHENIA [None]
  - ATRIOVENTRICULAR BLOCK [None]
  - ATRIOVENTRICULAR BLOCK FIRST DEGREE [None]
  - BLOOD PRESSURE DIASTOLIC DECREASED [None]
  - BRADYCARDIA [None]
  - BUNDLE BRANCH BLOCK LEFT [None]
  - DRUG INTERACTION [None]
  - DYSPNOEA EXERTIONAL [None]
  - GENERAL PHYSICAL HEALTH DETERIORATION [None]
  - HEART RATE DECREASED [None]
  - HYPERKALAEMIA [None]
  - RENAL IMPAIRMENT [None]
